FAERS Safety Report 15371856 (Version 1)
Quarter: 2018Q3

REPORT INFORMATION
  Report Type: Spontaneous
  Country: FR (occurrence: FR)
  Receive Date: 20180911
  Receipt Date: 20180911
  Transmission Date: 20181010
  Serious: Yes (Hospitalization)
  Sender: FDA-Public Use
  Company Number: FR-TEVA-2018-FR-953512

PATIENT
  Age: 61 Year
  Sex: Female
  Weight: 69 kg

DRUGS (22)
  1. CLOPIDOGREL (CHLORHYDRATE DE) [Suspect]
     Active Substance: CLOPIDOGREL HYDROCHLORIDE
     Indication: ACUTE CORONARY SYNDROME
     Route: 048
     Dates: start: 20180606
  2. CORDARONE [Suspect]
     Active Substance: AMIODARONE HYDROCHLORIDE
     Indication: PRODUCT USED FOR UNKNOWN INDICATION
     Route: 048
     Dates: start: 20180609, end: 20180609
  3. TAVANIC [Suspect]
     Active Substance: LEVOFLOXACIN
     Indication: PNEUMONIA
     Route: 048
     Dates: start: 20180602, end: 20180604
  4. ZYVOXID [Suspect]
     Active Substance: LINEZOLID
     Indication: LUNG INFECTION
     Route: 048
     Dates: start: 201806
  5. BACTRIM [Suspect]
     Active Substance: SULFAMETHOXAZOLE\TRIMETHOPRIM
     Indication: PRODUCT USED FOR UNKNOWN INDICATION
     Route: 048
     Dates: start: 20180609, end: 20180612
  6. ROVAMYCINE [Suspect]
     Active Substance: SPIRAMYCIN
     Indication: LUNG INFECTION
     Route: 048
     Dates: start: 20180611, end: 20180612
  7. INEXIUM [Suspect]
     Active Substance: ESOMEPRAZOLE
     Indication: ULCER
     Route: 048
     Dates: end: 20180612
  8. NOVORAPID [Concomitant]
     Active Substance: INSULIN ASPART
     Indication: TYPE 1 DIABETES MELLITUS
     Route: 042
     Dates: start: 201806
  9. CETIRIZINE (DICHLORHYDRATE DE) [Suspect]
     Active Substance: CETIRIZINE HYDROCHLORIDE
     Indication: URTICARIA
     Route: 048
     Dates: start: 20180609, end: 20180624
  10. KARDEGIC [Suspect]
     Active Substance: ASPIRIN DL-LYSINE
     Indication: PROPHYLAXIS
     Route: 048
     Dates: start: 20180601
  11. RACECADOTRIL [Suspect]
     Active Substance: RACECADOTRIL
     Indication: DIARRHOEA
     Route: 048
     Dates: start: 20180606, end: 20180611
  12. LANTUS [Concomitant]
     Active Substance: INSULIN GLARGINE
     Indication: TYPE 1 DIABETES MELLITUS
     Route: 048
     Dates: start: 201806
  13. PREDNISONE. [Concomitant]
     Active Substance: PREDNISONE
     Indication: PRODUCT USED FOR UNKNOWN INDICATION
     Route: 048
     Dates: start: 201806
  14. LANSOPRAZOLE. [Suspect]
     Active Substance: LANSOPRAZOLE
     Indication: DUODENAL ULCER
     Route: 048
     Dates: start: 20180601, end: 20180624
  15. TAZOCILLINE [Suspect]
     Active Substance: PIPERACILLIN SODIUM\TAZOBACTAM SODIUM
     Indication: LUNG INFECTION
     Route: 048
     Dates: start: 20180609, end: 20180617
  16. ATENOLOL. [Suspect]
     Active Substance: ATENOLOL
     Indication: MYOCARDIAL INFARCTION
     Route: 048
     Dates: start: 20180601, end: 20180624
  17. TAHOR [Suspect]
     Active Substance: ATORVASTATIN CALCIUM
     Indication: PROPHYLAXIS
     Route: 048
     Dates: start: 20180601, end: 20180624
  18. DOLIPRANE [Suspect]
     Active Substance: ACETAMINOPHEN
     Indication: PYREXIA
     Route: 048
     Dates: start: 20180602
  19. ROVAMYCINE [Suspect]
     Active Substance: SPIRAMYCIN
     Indication: LUNG INFECTION
     Route: 048
     Dates: start: 20180601, end: 20180608
  20. SOLU?MEDROL [Concomitant]
     Active Substance: METHYLPREDNISOLONE SODIUM SUCCINATE
     Indication: PRODUCT USED FOR UNKNOWN INDICATION
     Route: 042
     Dates: start: 201806
  21. FUROSEMIDE. [Suspect]
     Active Substance: FUROSEMIDE
     Indication: OEDEMA
     Route: 048
     Dates: start: 20180601, end: 20180624
  22. LOVENOX [Suspect]
     Active Substance: ENOXAPARIN SODIUM
     Indication: DEEP VEIN THROMBOSIS
     Route: 048
     Dates: start: 20180531, end: 20180609

REACTIONS (2)
  - Thrombocytopenia [Not Recovered/Not Resolved]
  - Anaemia [Not Recovered/Not Resolved]

NARRATIVE: CASE EVENT DATE: 20180614
